FAERS Safety Report 12583520 (Version 1)
Quarter: 2016Q3

REPORT INFORMATION
  Report Type: Spontaneous
  Country: JP (occurrence: JP)
  Receive Date: 20160722
  Receipt Date: 20160722
  Transmission Date: 20161109
  Serious: Yes (Other)
  Sender: FDA-Public Use
  Company Number: JP-DEPOMED, INC.-JP-2016DEP011456

PATIENT
  Age: 60 Year
  Sex: Male

DRUGS (9)
  1. SODIUM VALPROATE [Interacting]
     Active Substance: VALPROATE SODIUM
     Indication: EPILEPSY
  2. GABAPENTIN. [Suspect]
     Active Substance: GABAPENTIN
     Dosage: 100 MG, BID
     Route: 048
     Dates: start: 20081027
  3. SODIUM VALPROATE [Interacting]
     Active Substance: VALPROATE SODIUM
     Indication: PAIN
  4. SODIUM VALPROATE [Interacting]
     Active Substance: VALPROATE SODIUM
     Indication: MUSCULAR WEAKNESS
     Dosage: 1200 MG, QD
     Route: 048
  5. SODIUM VALPROATE [Interacting]
     Active Substance: VALPROATE SODIUM
     Indication: PARALYSIS
  6. GABAPENTIN. [Suspect]
     Active Substance: GABAPENTIN
     Dosage: 200 MG, BID
     Route: 048
     Dates: start: 20081025, end: 200810
  7. FLUNITRAZEPAM [Interacting]
     Active Substance: FLUNITRAZEPAM
     Indication: INSOMNIA
     Dosage: 0.5 MG, QD, BEFORE BEDTIME
     Route: 048
     Dates: start: 1986
  8. LOXOPROFEN [Concomitant]
     Active Substance: LOXOPROFEN
     Indication: PRODUCT USED FOR UNKNOWN INDICATION
     Dosage: 180 MG, UNK
  9. GABAPENTIN. [Suspect]
     Active Substance: GABAPENTIN
     Indication: NEURALGIA
     Dosage: 200 MG, BID
     Route: 048
     Dates: start: 20081021, end: 200810

REACTIONS (3)
  - Drug interaction [Recovered/Resolved]
  - Muscular weakness [Recovered/Resolved]
  - Gait disturbance [Recovered/Resolved]

NARRATIVE: CASE EVENT DATE: 200810
